FAERS Safety Report 20526824 (Version 1)
Quarter: 2022Q1

REPORT INFORMATION
  Report Type: Spontaneous
  Country: US (occurrence: US)
  Receive Date: 20220228
  Receipt Date: 20220228
  Transmission Date: 20220423
  Serious: Yes (Other)
  Sender: FDA-Public Use
  Company Number: US-NOVARTISPH-NVSC2022US046389

PATIENT
  Age: 54 Year
  Sex: Male

DRUGS (3)
  1. RANITIDINE [Suspect]
     Active Substance: RANITIDINE
     Indication: Multiple allergies
     Dosage: 300 MG  ,,DAILY,
     Route: 048
     Dates: start: 200601, end: 201401
  2. RANITIDINE [Suspect]
     Active Substance: RANITIDINE
     Indication: Multiple allergies
     Dosage: 300 MG  ,,DAILY,
     Route: 048
     Dates: start: 200601, end: 201401
  3. RANITIDINE [Suspect]
     Active Substance: RANITIDINE
     Indication: Multiple allergies
     Dosage: 300 MG,DAILY,
     Route: 048
     Dates: start: 200601, end: 201401

REACTIONS (2)
  - Colorectal cancer [Recovering/Resolving]
  - Prostate cancer [Recovering/Resolving]

NARRATIVE: CASE EVENT DATE: 20100201
